FAERS Safety Report 7324500-X (Version None)
Quarter: 2011Q1

REPORT INFORMATION
  Report Type: 
  Country: None (occurrence: None)
  Receive Date: 20110201
  Receipt Date: 20110215
  Transmission Date: 20110831
  Serious: Yes (Other)
  Sender: FDA-Public Use
  Company Number: US-004657

PATIENT
  Sex: Female
  Weight: 286 kg

DRUGS (1)
  1. PROSED/DS (NOT SPECIFIED) [Suspect]
     Indication: URINARY TRACT INFECTION
     Dosage: (1 DF BID ORAL)
     Route: 048
     Dates: start: 20101201

REACTIONS (2)
  - BLOOD PRESSURE INCREASED [None]
  - VISION BLURRED [None]
